FAERS Safety Report 9986686 (Version 1)
Quarter: 2014Q1

REPORT INFORMATION
  Report Type: Spontaneous
  Country: GB (occurrence: GB)
  Receive Date: 20140307
  Receipt Date: 20140307
  Transmission Date: 20141002
  Serious: Yes (Other)
  Sender: FDA-Public Use
  Company Number: GB-WATSON-2014-03820

PATIENT
  Age: 30 Year
  Sex: Female
  Weight: 76 kg

DRUGS (3)
  1. MIRTAZAPINE (UNKNOWN) [Suspect]
     Indication: DEPRESSION
     Dosage: 30 MG, UNKNOWN
     Route: 048
     Dates: start: 20131218, end: 20140115
  2. LEVOTHYROXINE [Concomitant]
     Indication: HYPOTHYROIDISM
     Dosage: 125 ?G, UNK
     Route: 048
     Dates: start: 2008
  3. SERTRALINE [Concomitant]
     Indication: DEPRESSION
     Dosage: 100 MG, UNKNOWN
     Route: 048
     Dates: start: 20130528, end: 20131226

REACTIONS (1)
  - Liver function test abnormal [Recovered/Resolved]
